FAERS Safety Report 8430127-9 (Version None)
Quarter: 2012Q2

REPORT INFORMATION
  Report Type: 
  Country: None (occurrence: None)
  Receive Date: 20120612
  Receipt Date: 20120607
  Transmission Date: 20120825
  Serious: Yes (Hospitalization, Disabling)
  Sender: FDA-Public Use
  Company Number: US-MERCK-1203USA03372

PATIENT
  Age: 71 Year
  Sex: Female

DRUGS (14)
  1. FOSAMAX [Suspect]
     Route: 048
     Dates: start: 20010601, end: 20070701
  2. ALENDRONATE SODIUM [Suspect]
     Route: 048
     Dates: start: 20090601
  3. BONIVA [Suspect]
     Indication: OSTEOPOROSIS
     Route: 048
     Dates: start: 20070801, end: 20071001
  4. ALENDRONATE SODIUM [Suspect]
     Route: 048
     Dates: start: 20090701, end: 20100201
  5. FOSAMAX [Suspect]
     Indication: OSTEOPOROSIS
     Route: 048
     Dates: start: 19951201, end: 20010401
  6. FOSAMAX [Suspect]
     Route: 048
     Dates: start: 19951201, end: 20010401
  7. ALENDRONATE SODIUM [Suspect]
     Indication: OSTEOPOROSIS
     Route: 048
     Dates: start: 20090601
  8. ALENDRONATE SODIUM [Suspect]
     Route: 048
     Dates: start: 20100501, end: 20110201
  9. ALENDRONATE SODIUM [Suspect]
     Route: 048
     Dates: start: 20090701, end: 20100201
  10. FOSAMAX [Suspect]
     Route: 048
     Dates: start: 20010601, end: 20070701
  11. FOSAMAX [Suspect]
     Route: 048
     Dates: start: 20070701
  12. ALENDRONATE SODIUM [Suspect]
     Route: 048
     Dates: start: 20100501, end: 20110201
  13. BONIVA [Suspect]
     Route: 048
     Dates: start: 20070801, end: 20071001
  14. FOSAMAX [Suspect]
     Route: 048
     Dates: start: 20070701

REACTIONS (6)
  - LOW TURNOVER OSTEOPATHY [None]
  - ANKLE FRACTURE [None]
  - SJOGREN'S SYNDROME [None]
  - FEMUR FRACTURE [None]
  - RIB FRACTURE [None]
  - SPINAL COMPRESSION FRACTURE [None]
